FAERS Safety Report 24354782 (Version 1)
Quarter: 2024Q3

REPORT INFORMATION
  Report Type: Spontaneous
  Country: US (occurrence: US)
  Receive Date: 20240923
  Receipt Date: 20240923
  Transmission Date: 20241017
  Serious: No
  Sender: JOHNSON AND JOHNSON
  Company Number: US-VIIV HEALTHCARE LIMITED-US2024AMR115729

PATIENT
  Age: 34 Year
  Sex: Male

DRUGS (2)
  1. RILPIVIRINE [Suspect]
     Active Substance: RILPIVIRINE
     Indication: Acute HIV infection
     Dosage: UNK
     Route: 065
     Dates: start: 2022
  2. CABOTEGRAVIR [Suspect]
     Active Substance: CABOTEGRAVIR
     Indication: Acute HIV infection
     Dosage: UNK
     Route: 065
     Dates: start: 2022

REACTIONS (4)
  - Pyrexia [Unknown]
  - Chills [Unknown]
  - Virologic failure [Unknown]
  - Pathogen resistance [Unknown]
